FAERS Safety Report 7716052-7 (Version None)
Quarter: 2011Q3

REPORT INFORMATION
  Report Type: 
  Country: None (occurrence: None)
  Receive Date: 20110829
  Receipt Date: 20110816
  Transmission Date: 20111222
  Serious: Yes (Hospitalization)
  Sender: FDA-Public Use
  Company Number: US-GLAXOSMITHKLINE-A0882804A

PATIENT
  Age: 52 Year
  Sex: Male
  Weight: 98.6 kg

DRUGS (9)
  1. IMDUR [Concomitant]
  2. ACCUPRIL [Concomitant]
  3. GLYBURIDE [Concomitant]
  4. LIPITOR [Concomitant]
  5. WELCHOL [Concomitant]
  6. ASPIRIN [Concomitant]
  7. LIPITOR [Concomitant]
  8. AVANDIA [Suspect]
     Indication: TYPE 2 DIABETES MELLITUS
     Dosage: 4MG PER DAY
     Route: 048
     Dates: start: 20010601, end: 20091201
  9. LOPRESSOR [Concomitant]

REACTIONS (3)
  - CORONARY ARTERY DISEASE [None]
  - WALLENBERG SYNDROME [None]
  - MYOCARDIAL INFARCTION [None]
